FAERS Safety Report 8105091-2 (Version None)
Quarter: 2012Q1

REPORT INFORMATION
  Report Type: 
  Country: None (occurrence: None)
  Receive Date: 20120201
  Receipt Date: 20120125
  Transmission Date: 20120608
  Serious: Yes (Death, Hospitalization, Other)
  Sender: FDA-Public Use
  Company Number: AU-CELGENEUS-008-21880-11114277

PATIENT
  Sex: Male

DRUGS (5)
  1. REVLIMID [Suspect]
     Route: 048
     Dates: end: 20111031
  2. REVLIMID [Suspect]
     Indication: MULTIPLE MYELOMA
     Route: 048
     Dates: start: 20100601
  3. DEXAMETHASONE [Suspect]
     Route: 065
  4. WARFARIN SODIUM [Concomitant]
     Dosage: 3/4MG
     Route: 065
  5. ASPIRIN [Concomitant]
     Indication: THROMBOSIS PROPHYLAXIS
     Dosage: 1 TABLET
     Route: 065

REACTIONS (5)
  - CARDIAC ARREST [None]
  - CELLULITIS [None]
  - LOBAR PNEUMONIA [None]
  - PULMONARY EMBOLISM [None]
  - OEDEMA PERIPHERAL [None]
